FAERS Safety Report 14933855 (Version 1)
Quarter: 2018Q2

REPORT INFORMATION
  Report Type: Spontaneous
  Country: US (occurrence: US)
  Receive Date: 20180504
  Receipt Date: 20180504
  Transmission Date: 20180711
  Serious: Yes (Death)
  Sender: FDA-Public Use
  Company Number: None

PATIENT
  Age: 31 Year
  Sex: Male
  Weight: 74.25 kg

DRUGS (7)
  1. CYMBALTA [Suspect]
     Active Substance: DULOXETINE HYDROCHLORIDE
     Indication: ANXIETY
     Dosage: ?          QUANTITY:1 CAPSULE(S);?
     Route: 048
     Dates: end: 20171125
  2. VITAMIN D [Concomitant]
     Active Substance: CHOLECALCIFEROL
  3. OXYCODONE [Concomitant]
     Active Substance: OXYCODONE
  4. XANAX [Concomitant]
     Active Substance: ALPRAZOLAM
  5. CYMBALTA [Suspect]
     Active Substance: DULOXETINE HYDROCHLORIDE
     Indication: DEPRESSION
     Dosage: ?          QUANTITY:1 CAPSULE(S);?
     Route: 048
     Dates: end: 20171125
  6. NEURONTIN [Concomitant]
     Active Substance: GABAPENTIN
  7. AMBIEN [Concomitant]
     Active Substance: ZOLPIDEM TARTRATE

REACTIONS (10)
  - Completed suicide [None]
  - Derealisation [None]
  - Mental disorder [None]
  - Depressed mood [None]
  - Depression [None]
  - Anger [None]
  - Agitation [None]
  - Feeling of despair [None]
  - Stress [None]
  - Gun shot wound [None]

NARRATIVE: CASE EVENT DATE: 20171125
